FAERS Safety Report 7221999-4 (Version None)
Quarter: 2011Q1

REPORT INFORMATION
  Report Type: 
  Country: None (occurrence: None)
  Receive Date: 20110112
  Receipt Date: 20110103
  Transmission Date: 20110831
  Serious: Yes (Hospitalization)
  Sender: FDA-Public Use
  Company Number: FR-ASTRAZENECA-2011SE00633

PATIENT
  Age: 72 Year
  Sex: Female

DRUGS (5)
  1. RIVOTRIL [Suspect]
     Route: 048
     Dates: end: 20101208
  2. TEMERIT [Suspect]
     Route: 048
     Dates: end: 20101208
  3. MOPRAL [Suspect]
     Route: 048
  4. COTRIATEC [Suspect]
     Route: 048
  5. ACETAMINOPHEN AND TRAMADOL HCL [Suspect]
     Route: 048
     Dates: end: 20101208

REACTIONS (4)
  - POISONING DELIBERATE [None]
  - RENAL FAILURE ACUTE [None]
  - BRADYCARDIA [None]
  - HEPATITIS ACUTE [None]
